FAERS Safety Report 22016942 (Version 2)
Quarter: 2023Q1

REPORT INFORMATION
  Report Type: Spontaneous
  Country: US (occurrence: US)
  Receive Date: 20230221
  Receipt Date: 20230322
  Transmission Date: 20230418
  Serious: No
  Sender: FDA-Public Use
  Company Number: US-PFIZER INC-202300074162

PATIENT
  Age: 69 Year
  Sex: Female
  Weight: 98.88 kg

DRUGS (2)
  1. PAXLOVID [Suspect]
     Active Substance: NIRMATRELVIR\RITONAVIR
     Indication: COVID-19 treatment
     Dosage: UNK
  2. PROPRANOLOL [Concomitant]
     Active Substance: PROPRANOLOL HYDROCHLORIDE
     Indication: Hypertension

REACTIONS (2)
  - COVID-19 [Unknown]
  - Disease recurrence [Unknown]

NARRATIVE: CASE EVENT DATE: 20230218
